FAERS Safety Report 8202804-6 (Version None)
Quarter: 2012Q1

REPORT INFORMATION
  Report Type: 
  Country: None (occurrence: None)
  Receive Date: 20120312
  Receipt Date: 20120312
  Transmission Date: 20120608
  Serious: Yes (Other)
  Sender: FDA-Public Use
  Company Number: None

PATIENT
  Age: 12 Year
  Sex: Male
  Weight: 31 kg

DRUGS (4)
  1. OMNITROPE [Concomitant]
     Dosage: 1.6 MG
     Route: 058
     Dates: start: 20110923, end: 20120301
  2. OMNITROPE [Suspect]
     Indication: GROWTH RETARDATION
     Dosage: 1.6 MG
     Route: 058
     Dates: start: 20110923, end: 20120301
  3. DAYTRANA [Concomitant]
  4. KEFLEX [Concomitant]

REACTIONS (3)
  - ERYTHEMA MULTIFORME [None]
  - SERUM SICKNESS [None]
  - OEDEMA PERIPHERAL [None]
